FAERS Safety Report 12760493 (Version 5)
Quarter: 2016Q4

REPORT INFORMATION
  Report Type: Spontaneous
  Country: US (occurrence: US)
  Receive Date: 20160919
  Receipt Date: 20161117
  Transmission Date: 20170207
  Serious: Yes (Hospitalization)
  Sender: FDA-Public Use
  Company Number: US-ACTELION-A-US2016-142243

PATIENT
  Age: 65 Year
  Sex: Female

DRUGS (3)
  1. VELETRI [Suspect]
     Active Substance: EPOPROSTENOL
     Indication: PULMONARY ARTERIAL HYPERTENSION
     Dosage: 15 NG/KG, PER MIN
     Route: 042
     Dates: start: 201604
  2. ESBRIET [Concomitant]
     Active Substance: PIRFENIDONE
  3. OXYGEN. [Concomitant]
     Active Substance: OXYGEN
     Dosage: 2 L, UNK
     Route: 045

REACTIONS (19)
  - Bacteraemia [Recovered/Resolved]
  - Pyrexia [Recovered/Resolved]
  - Culture positive [Recovered/Resolved]
  - Device connection issue [Recovered/Resolved]
  - Device related sepsis [Recovered/Resolved]
  - Catheter site swelling [Recovered/Resolved]
  - Catheter site pain [Recovered/Resolved]
  - Catheter site pruritus [Recovered/Resolved]
  - Device leakage [Unknown]
  - Cyanosis [Unknown]
  - Device related infection [Recovered/Resolved]
  - No adverse event [Recovered/Resolved]
  - Device dislocation [Recovered/Resolved]
  - Device loosening [Recovered/Resolved]
  - Catheter site infection [Recovered/Resolved]
  - Catheter site erythema [Recovered/Resolved]
  - Staphylococcal infection [Recovered/Resolved]
  - Device breakage [Unknown]
  - Chills [Recovered/Resolved]

NARRATIVE: CASE EVENT DATE: 20160810
